FAERS Safety Report 12343267 (Version 4)
Quarter: 2016Q4

REPORT INFORMATION
  Report Type: Report from Study
  Country: None (occurrence: FR)
  Receive Date: 20160506
  Receipt Date: 20161104
  Transmission Date: 20170207
  Serious: Yes (Other)
  Sender: FDA-Public Use
  Company Number: FR-ABBVIE-16P-056-1619428-00

PATIENT
  Age: 54 Year
  Sex: Male

DRUGS (21)
  1. AUGMENTIN [Concomitant]
     Active Substance: AMOXICILLIN\CLAVULANATE POTASSIUM
     Indication: LUNG DISORDER
     Dates: start: 20150407, end: 20150414
  2. MACROGOL [Concomitant]
     Active Substance: POLYETHYLENE GLYCOLS
     Indication: CONSTIPATION
     Dates: start: 20150217
  3. DEXERYL (GLYCEROL/PARAFFIN, LIQUID/WHITE SOFT PARAFFIN) [Concomitant]
     Indication: PRURITUS
     Dates: start: 20150217, end: 20150414
  4. AUGMENTIN [Concomitant]
     Active Substance: AMOXICILLIN\CLAVULANATE POTASSIUM
     Indication: EAR INFECTION
     Dates: start: 20150505, end: 20150515
  5. OFLOCET [Concomitant]
     Active Substance: OFLOXACIN
     Indication: LUNG DISORDER
     Dates: start: 20150407, end: 20150418
  6. AERIUS [Concomitant]
     Active Substance: DESLORATADINE
     Indication: HYPERSENSITIVITY
     Dates: start: 20150707, end: 20150807
  7. VENETOCLAX [Suspect]
     Active Substance: VENETOCLAX
     Route: 048
     Dates: start: 20150217, end: 20150223
  8. TAVANIC [Concomitant]
     Active Substance: LEVOFLOXACIN
     Indication: LUNG DISORDER
     Dates: start: 20150610, end: 20150617
  9. PLATELETS [Concomitant]
     Active Substance: HUMAN PLATELET, ALLOGENIC
     Indication: THROMBOCYTOPENIA
     Dates: start: 20160217, end: 20160217
  10. VENETOCLAX [Suspect]
     Active Substance: VENETOCLAX
     Route: 048
     Dates: start: 20150303, end: 20150309
  11. RITUXIMAB [Suspect]
     Active Substance: RITUXIMAB
     Indication: CHRONIC LYMPHOCYTIC LEUKAEMIA
     Route: 042
     Dates: start: 20150317, end: 20150317
  12. AUGMENTIN [Concomitant]
     Active Substance: AMOXICILLIN\CLAVULANATE POTASSIUM
     Dates: start: 20150814, end: 20150824
  13. AMOXICILLINE [Concomitant]
     Active Substance: AMOXICILLIN
     Indication: INFECTION
     Dates: start: 20150908
  14. VENETOCLAX [Suspect]
     Active Substance: VENETOCLAX
     Indication: CHRONIC LYMPHOCYTIC LEUKAEMIA
     Route: 048
     Dates: start: 20150210, end: 20150216
  15. VENETOCLAX [Suspect]
     Active Substance: VENETOCLAX
     Route: 048
     Dates: start: 20150224, end: 20150302
  16. ZELITREX [Concomitant]
     Active Substance: VALACYCLOVIR HYDROCHLORIDE
     Indication: HERPES ZOSTER
     Dates: start: 20150512
  17. VENETOCLAX [Suspect]
     Active Substance: VENETOCLAX
     Route: 048
     Dates: start: 20150310, end: 20160120
  18. RITUXIMAB [Suspect]
     Active Substance: RITUXIMAB
     Route: 042
     Dates: start: 20150414, end: 20150804
  19. NEORECORMON [Concomitant]
     Active Substance: ERYTHROPOIETIN
     Indication: ANAEMIA
     Dates: start: 20160211, end: 20160414
  20. AUGMENTIN [Concomitant]
     Active Substance: AMOXICILLIN\CLAVULANATE POTASSIUM
     Dates: start: 20150602, end: 20150610
  21. BACTRIM [Concomitant]
     Active Substance: SULFAMETHOXAZOLE\TRIMETHOPRIM
     Indication: INFECTION
     Dates: start: 20150512, end: 20160219

REACTIONS (1)
  - Ventricular tachycardia [Recovered/Resolved]

NARRATIVE: CASE EVENT DATE: 20160322
